FAERS Safety Report 8308022-5 (Version None)
Quarter: 2012Q2

REPORT INFORMATION
  Report Type: 
  Country: None (occurrence: None)
  Receive Date: 20120424
  Receipt Date: 20120417
  Transmission Date: 20120825
  Serious: Yes (Hospitalization)
  Sender: FDA-Public Use
  Company Number: US-US-EMD SERONO, INC.-7127088

PATIENT
  Sex: Female
  Weight: 68 kg

DRUGS (3)
  1. REBIF [Suspect]
     Indication: MULTIPLE SCLEROSIS
     Route: 058
     Dates: start: 20111013
  2. BETA BLOCKER [Concomitant]
     Indication: HYPERTENSION
  3. UNSPECIFIED SEASONAL ALLERGY MEDICATION [Concomitant]
     Indication: SEASONAL ALLERGY

REACTIONS (3)
  - BLOOD PRESSURE DECREASED [None]
  - SINUSITIS [None]
  - PARASITIC GASTROENTERITIS [None]
